FAERS Safety Report 9611751 (Version 1)
Quarter: 2013Q4

REPORT INFORMATION
  Report Type: Spontaneous
  Country: US (occurrence: US)
  Receive Date: 20131010
  Receipt Date: 20131010
  Transmission Date: 20140711
  Serious: Yes (Hospitalization)
  Sender: FDA-Public Use
  Company Number: US-PFIZER INC-2013285272

PATIENT
  Age: 47 Year
  Sex: Female
  Weight: 115.65 kg

DRUGS (5)
  1. REVATIO [Suspect]
     Indication: ARRHYTHMIA
     Dosage: 10 MG (HALF OF 20MG), 2X/DAY
     Route: 048
  2. REVATIO [Suspect]
     Dosage: UNK
     Route: 048
  3. SPIRONOLACTONE [Concomitant]
     Dosage: UNK
  4. COUMADIN [Concomitant]
     Dosage: UNK
  5. BUMETANIDE [Concomitant]
     Dosage: UNK

REACTIONS (2)
  - Drug ineffective for unapproved indication [Unknown]
  - Off label use [Unknown]
